FAERS Safety Report 8518704-8 (Version None)
Quarter: 2012Q3

REPORT INFORMATION
  Report Type: 
  Country: None (occurrence: None)
  Receive Date: 20120718
  Receipt Date: 20110615
  Transmission Date: 20120928
  Serious: No
  Sender: FDA-Public Use
  Company Number: US-BRISTOL-MYERS SQUIBB COMPANY-15834013

PATIENT
  Age: 85 Year
  Sex: Female

DRUGS (2)
  1. COUMADIN [Suspect]
     Indication: CARDIAC PACEMAKER INSERTION
     Dosage: RX NO 6686809-1224
  2. ASPIRIN [Concomitant]

REACTIONS (4)
  - CONTUSION [None]
  - SKIN DISCOLOURATION [None]
  - PRURITUS [None]
  - PAIN [None]
